FAERS Safety Report 21792846 (Version 3)
Quarter: 2023Q1

REPORT INFORMATION
  Report Type: Other
  Country: US (occurrence: None)
  Receive Date: 20221229
  Receipt Date: 20230110
  Transmission Date: 20230418
  Serious: No
  Sender: FDA-Public Use
  Company Number: US-ROCHE-3249201

PATIENT
  Age: 64 Year
  Sex: Male

DRUGS (6)
  1. ACTEMRA [Suspect]
     Active Substance: TOCILIZUMAB
     Indication: Arthropathy
     Route: 058
  2. ACTEMRA [Suspect]
     Active Substance: TOCILIZUMAB
  3. ACTEMRA [Suspect]
     Active Substance: TOCILIZUMAB
     Indication: Neoplasm
  4. ACTEMRA [Suspect]
     Active Substance: TOCILIZUMAB
  5. ACTEMRA [Suspect]
     Active Substance: TOCILIZUMAB
     Indication: Neoplasm malignant
  6. ACTEMRA [Suspect]
     Active Substance: TOCILIZUMAB

REACTIONS (4)
  - Product complaint [Unknown]
  - Contusion [Unknown]
  - Device malfunction [Unknown]
  - Off label use [Unknown]
